FAERS Safety Report 17269964 (Version 1)
Quarter: 2020Q1

REPORT INFORMATION
  Report Type: Spontaneous
  Country: US (occurrence: US)
  Receive Date: 20200114
  Receipt Date: 20200114
  Transmission Date: 20200409
  Serious: Yes (Death, Hospitalization, Other)
  Sender: FDA-Public Use
  Company Number: US-BAUSCH-BL-2020-000647

PATIENT
  Age: 32 Year
  Sex: Male

DRUGS (1)
  1. BUPROPION. [Suspect]
     Active Substance: BUPROPION
     Indication: SUICIDE ATTEMPT
     Route: 065

REACTIONS (6)
  - Toxicity to various agents [Unknown]
  - Cardiogenic shock [Fatal]
  - Acute kidney injury [Unknown]
  - Intentional overdose [Unknown]
  - Metabolic acidosis [Unknown]
  - Completed suicide [Fatal]
